FAERS Safety Report 9851048 (Version 1)
Quarter: 2014Q1

REPORT INFORMATION
  Report Type: Spontaneous
  Country: US (occurrence: US)
  Receive Date: 20140128
  Receipt Date: 20140128
  Transmission Date: 20141002
  Serious: No
  Sender: FDA-Public Use
  Company Number: US-DYAX CORP.-2013DX000077

PATIENT
  Age: 8 Year
  Sex: Female
  Weight: 32 kg

DRUGS (11)
  1. KALBITOR [Suspect]
     Indication: HEREDITARY ANGIOEDEMA
     Route: 058
     Dates: start: 20130413, end: 20130413
  2. KALBITOR [Suspect]
     Route: 058
     Dates: start: 20130423, end: 20130423
  3. KALBITOR [Suspect]
     Route: 058
     Dates: start: 201204
  4. ZYRTEC [Concomitant]
     Indication: ASTHMA
     Route: 048
     Dates: start: 2009
  5. ZYRTEC [Concomitant]
     Indication: SEASONAL ALLERGY
  6. SINGULAIR [Concomitant]
     Indication: ASTHMA
     Route: 048
     Dates: start: 2009
  7. SINGULAIR [Concomitant]
     Indication: SEASONAL ALLERGY
  8. BENADRYL [Concomitant]
     Indication: ASTHMA
     Route: 048
     Dates: start: 201301
  9. BENADRYL [Concomitant]
     Indication: SEASONAL ALLERGY
  10. CODEINE [Concomitant]
     Indication: PRODUCT USED FOR UNKNOWN INDICATION
     Route: 048
     Dates: start: 2011
  11. TYLENOL [Concomitant]
     Indication: PAIN
     Route: 048
     Dates: start: 2005

REACTIONS (6)
  - Injection site rash [Recovered/Resolved]
  - Injection site swelling [Recovered/Resolved]
  - Injection site erythema [Recovered/Resolved]
  - Injection site pruritus [Recovered/Resolved]
  - Injection site pain [Recovered/Resolved]
  - Off label use [Unknown]
